FAERS Safety Report 7630382-9 (Version None)
Quarter: 2011Q3

REPORT INFORMATION
  Report Type: 
  Country: None (occurrence: None)
  Receive Date: 20110722
  Receipt Date: 20110216
  Transmission Date: 20111222
  Serious: Yes (Other)
  Sender: FDA-Public Use
  Company Number: CA-GLAXOSMITHKLINE-A0914035A

PATIENT
  Sex: Male

DRUGS (1)
  1. AVODART [Suspect]
     Indication: PROSTATIC DISORDER
     Dosage: 1CAP PER DAY
     Route: 065
     Dates: start: 20100924

REACTIONS (2)
  - OESOPHAGEAL OBSTRUCTION [None]
  - OESOPHAGEAL CARCINOMA [None]
